FAERS Safety Report 6593228-6 (Version None)
Quarter: 2010Q1

REPORT INFORMATION
  Report Type: 
  Country: None (occurrence: None)
  Receive Date: 20100222
  Receipt Date: 20100222
  Transmission Date: 20100710
  Serious: Yes (Hospitalization)
  Sender: FDA-Public Use
  Company Number: PHHO2008AU01009

PATIENT
  Sex: Female
  Weight: 65.9 kg

DRUGS (7)
  1. ZOLEDRONIC ACID [Suspect]
     Indication: OSTEOPOROSIS POSTMENOPAUSAL
     Dosage: 5 MG ONCE A YEAR
     Route: 042
  2. CALCIUM [Concomitant]
  3. VITAMIN D [Concomitant]
  4. ATENOLOL [Concomitant]
     Indication: HYPERTENSION
  5. AVAPRO [Concomitant]
     Indication: HYPERTENSION
  6. ROSUVASTATIN [Concomitant]
  7. ASPIRIN [Concomitant]

REACTIONS (8)
  - ANGINA UNSTABLE [None]
  - ATRIAL FIBRILLATION [None]
  - CONCOMITANT DISEASE PROGRESSION [None]
  - CORONARY ARTERY BYPASS [None]
  - HYPERTENSION [None]
  - MYOCARDIAL ISCHAEMIA [None]
  - PALPITATIONS [None]
  - SUPRAVENTRICULAR TACHYCARDIA [None]
